FAERS Safety Report 6256815-0 (Version None)
Quarter: 2009Q3

REPORT INFORMATION
  Report Type: 
  Country: None (occurrence: None)
  Receive Date: 20090706
  Receipt Date: 20090625
  Transmission Date: 20100115
  Serious: Yes (Other)
  Sender: FDA-Public Use
  Company Number: PHHY2008MX29797

PATIENT
  Sex: Female

DRUGS (3)
  1. DIOVAN [Suspect]
     Indication: HYPERTENSION
     Dosage: UNK
     Route: 048
     Dates: start: 20071201, end: 20081101
  2. LOPRESOR [Concomitant]
  3. PANTOPRAZOLE SODIUM [Concomitant]

REACTIONS (5)
  - CARDIAC DISORDER [None]
  - DRUG RESISTANCE [None]
  - HYPERTENSION [None]
  - LUNG DISORDER [None]
  - PRODUCTIVE COUGH [None]
